FAERS Safety Report 21766369 (Version 7)
Quarter: 2023Q2

REPORT INFORMATION
  Report Type: Spontaneous
  Country: US (occurrence: US)
  Receive Date: 20221222
  Receipt Date: 20230609
  Transmission Date: 20230721
  Serious: Yes (Other)
  Sender: FDA-Public Use
  Company Number: US-PFIZER INC-PV202200095088

PATIENT
  Age: 62 Year
  Sex: Female

DRUGS (3)
  1. XELJANZ XR [Suspect]
     Active Substance: TOFACITINIB CITRATE
     Indication: Rheumatoid arthritis
     Dosage: 11 MG, 1X/DAY
     Route: 048
     Dates: start: 2022, end: 202210
  2. XELJANZ XR [Suspect]
     Active Substance: TOFACITINIB CITRATE
     Dosage: 11 MG, 1X/DAY
     Route: 048
     Dates: start: 20221025
  3. XELJANZ XR [Suspect]
     Active Substance: TOFACITINIB CITRATE
     Dosage: 11 MG
     Route: 048
     Dates: start: 20221025

REACTIONS (10)
  - Animal bite [Unknown]
  - Tooth disorder [Unknown]
  - Condition aggravated [Not Recovered/Not Resolved]
  - Infection [Unknown]
  - Limb injury [Unknown]
  - Skin bacterial infection [Recovering/Resolving]
  - Fatigue [Recovering/Resolving]
  - Depression [Unknown]
  - Discouragement [Unknown]
  - Off label use [Unknown]

NARRATIVE: CASE EVENT DATE: 20221025
